FAERS Safety Report 25067017 (Version 2)
Quarter: 2025Q1

REPORT INFORMATION
  Report Type: Spontaneous
  Country: JP (occurrence: JP)
  Receive Date: 20250312
  Receipt Date: 20250325
  Transmission Date: 20250408
  Serious: Yes (Hospitalization, Other)
  Sender: ALEXION PHARMACEUTICALS
  Company Number: JP-ASTRAZENECA-250021867_032810_P_1

PATIENT
  Age: 89 Year

DRUGS (1)
  1. BREZTRI [Suspect]
     Active Substance: BUDESONIDE\FORMOTEROL\GLYCOPYRROLATE
     Indication: Respiratory symptom

REACTIONS (3)
  - Oesophageal candidiasis [Recovering/Resolving]
  - Cardiac failure [Unknown]
  - Palpitations [Unknown]
